FAERS Safety Report 4921146-5 (Version None)
Quarter: 2006Q1

REPORT INFORMATION
  Report Type: 
  Country: None (occurrence: None)
  Receive Date: 20060217
  Receipt Date: 20060210
  Transmission Date: 20060701
  Serious: Yes (Hospitalization)
  Sender: FDA-Public Use
  Company Number: 216759

PATIENT
  Age: 52 Year
  Sex: Male
  Weight: 76 kg

DRUGS (4)
  1. MABTHERA                  (RITUXIMAB) [Suspect]
     Indication: CHRONIC LYMPHOCYTIC LEUKAEMIA
     Dosage: 975 MG, Q28D, INTRAVENOUS
     Route: 042
     Dates: start: 20050803, end: 20050803
  2. FLUDARABINE PHOSPHATE [Suspect]
     Indication: CHRONIC LYMPHOCYTIC LEUKAEMIA
     Dosage: 48.75 MG, QD, INTRAVENOUS
     Route: 042
     Dates: start: 20050803, end: 20050805
  3. CYCLOPHOSPHAMIDE [Suspect]
     Indication: CHRONIC LYMPHOCYTIC LEUKAEMIA
     Dosage: 487.5 MG, QD, INTRAVENOUS
     Route: 042
     Dates: start: 20050803, end: 20050805
  4. BACTRIM DS [Concomitant]

REACTIONS (2)
  - DRUG HYPERSENSITIVITY [None]
  - FEBRILE NEUTROPENIA [None]
